FAERS Safety Report 8080950-8 (Version None)
Quarter: 2012Q1

REPORT INFORMATION
  Report Type: 
  Country: None (occurrence: None)
  Receive Date: 20120130
  Receipt Date: 20120120
  Transmission Date: 20120608
  Serious: Yes (Hospitalization)
  Sender: FDA-Public Use
  Company Number: US-BAYER-200933600NA

PATIENT
  Age: 37 Year
  Sex: Female
  Weight: 113.38 kg

DRUGS (10)
  1. COUMADIN [Concomitant]
     Indication: DEEP VEIN THROMBOSIS
     Dosage: 7.5 MG, QD
  2. YAZ [Suspect]
     Indication: CONTRACEPTION
     Dosage: UNK UNK, QD
     Dates: start: 20070601, end: 20080901
  3. SYNTHROID [Concomitant]
     Dosage: 0.75 MG, QD
  4. LEXAPRO [Concomitant]
     Dosage: 10 MG, QD
  5. COUMADIN [Concomitant]
     Indication: PULMONARY EMBOLISM
  6. ATENOLOL [Concomitant]
     Dosage: UNK
     Dates: start: 20080812
  7. TENORMIN [Concomitant]
     Dosage: UNK
     Dates: start: 20080812
  8. YASMIN [Suspect]
     Indication: CONTRACEPTION
     Dosage: UNK UNK, QD
     Dates: start: 20031101, end: 20061001
  9. EVISTA [Concomitant]
     Dosage: UNK
     Dates: start: 20030523
  10. BACTRIM [Concomitant]
     Dosage: UNK
     Dates: start: 20080807

REACTIONS (6)
  - PULMONARY EMBOLISM [None]
  - DEEP VEIN THROMBOSIS [None]
  - PAIN [None]
  - RESPIRATORY FAILURE [None]
  - HAEMATOMA [None]
  - ANAEMIA [None]
